FAERS Safety Report 22019945 (Version 1)
Quarter: 2023Q1

REPORT INFORMATION
  Report Type: Spontaneous
  Country: US (occurrence: US)
  Receive Date: 20230222
  Receipt Date: 20230222
  Transmission Date: 20230418
  Serious: Yes (Other)
  Sender: FDA-Public Use
  Company Number: US-AUROBINDO-AUR-APL-2022-055272

PATIENT
  Age: 62 Year
  Sex: Female

DRUGS (5)
  1. ONDANSETRON [Suspect]
     Active Substance: ONDANSETRON
     Indication: Nausea
     Dosage: UNK (AS NEEDED)
     Route: 065
  2. MINOCYCLINE [Suspect]
     Active Substance: MINOCYCLINE HYDROCHLORIDE
     Indication: Wound infection
     Dosage: 200 MILLIGRAM, TWO TIMES A DAY (BY MOUTH OR 10 DAYS)
     Route: 065
  3. OMADACYCLINE [Concomitant]
     Active Substance: OMADACYCLINE
     Indication: Wound infection
     Dosage: UNK
     Route: 048
  4. OMADACYCLINE [Concomitant]
     Active Substance: OMADACYCLINE
     Dosage: 450 MILLIGRAM, ONCE A DAY (BY MOUTH,ON DAYS 1 AND 2)
     Route: 065
  5. OMADACYCLINE [Concomitant]
     Active Substance: OMADACYCLINE
     Dosage: 300 MILLIGRAM, ONCE A DAY (BY MOUTH FROM DAY 3 TO DAY 10.)
     Route: 065

REACTIONS (1)
  - Drug ineffective [Unknown]
